FAERS Safety Report 21140508 (Version 1)
Quarter: 2022Q3

REPORT INFORMATION
  Report Type: Report from Study
  Country: IT (occurrence: IT)
  Receive Date: 20220728
  Receipt Date: 20220728
  Transmission Date: 20221027
  Serious: Yes (Other)
  Sender: FDA-Public Use
  Company Number: IT-SUN PHARMACEUTICAL INDUSTRIES LTD-2022RR-346221

PATIENT
  Age: 71 Year
  Sex: Male

DRUGS (4)
  1. OXALIPLATIN [Suspect]
     Active Substance: OXALIPLATIN
     Indication: K-ras gene mutation
     Dosage: UNK
     Route: 065
     Dates: start: 201905, end: 201911
  2. OXALIPLATIN [Suspect]
     Active Substance: OXALIPLATIN
     Indication: BRAF V600E mutation positive
  3. CAPECITABINE [Suspect]
     Active Substance: CAPECITABINE
     Indication: K-ras gene mutation
     Dosage: UNK
     Route: 065
     Dates: start: 201905, end: 201911
  4. CAPECITABINE [Suspect]
     Active Substance: CAPECITABINE
     Indication: BRAF V600E mutation positive

REACTIONS (2)
  - Neurotoxicity [Unknown]
  - Diarrhoea [Unknown]
